FAERS Safety Report 5113393-7 (Version None)
Quarter: 2006Q3

REPORT INFORMATION
  Report Type: 
  Country: None (occurrence: None)
  Receive Date: 20060920
  Receipt Date: 20060906
  Transmission Date: 20061208
  Serious: Yes (Hospitalization)
  Sender: FDA-Public Use
  Company Number: 229577

PATIENT
  Age: 40 Year
  Sex: Male
  Weight: 62 kg

DRUGS (5)
  1. MABTHERA (RITUXIMAB) CONC FOR SOLUTION FOR INFUSION [Suspect]
     Indication: LYMPHOMA
     Dosage: 375 MG/ML, Q4W, INTRAVENOUS
     Route: 042
     Dates: start: 20051004, end: 20060222
  2. CYCLOPHOSPHAMIDE [Suspect]
     Indication: LYMPHOMA
     Dosage: 1000 MG/M2, Q4W, INTRAVENOUS
     Route: 042
     Dates: start: 20051004, end: 20060222
  3. FLUDARABINE PHOSPHATE [Suspect]
     Indication: LYMPHOMA
     Dosage: 75 MG/M2, Q4W, INTRAVENOUS
     Route: 042
     Dates: start: 20051004, end: 20060222
  4. ACYCLOVIR [Concomitant]
  5. PENTAMIDINE (PENTAMIDINE) [Concomitant]

REACTIONS (1)
  - FEBRILE NEUTROPENIA [None]
